FAERS Safety Report 22301593 (Version 2)
Quarter: 2023Q2

REPORT INFORMATION
  Report Type: Spontaneous
  Country: FR (occurrence: FR)
  Receive Date: 20230510
  Receipt Date: 20230512
  Transmission Date: 20230721
  Serious: Yes (Hospitalization, Other)
  Sender: FDA-Public Use
  Company Number: FR-002147023-NVSC2023FR099278

PATIENT
  Sex: Male
  Weight: 9 kg

DRUGS (1)
  1. ZOLGENSMA [Suspect]
     Active Substance: ONASEMNOGENE ABEPARVOVEC-XIOI
     Indication: Spinal muscular atrophy
     Dosage: UNK UNK, ONCE/SINGLE
     Route: 042
     Dates: start: 20230331, end: 20230331

REACTIONS (4)
  - Thrombocytopenia [Recovered/Resolved]
  - Haptoglobin decreased [Recovered/Resolved]
  - Blood lactate dehydrogenase increased [Recovered/Resolved]
  - Complement factor abnormal [Unknown]
